FAERS Safety Report 25462023 (Version 1)
Quarter: 2025Q2

REPORT INFORMATION
  Report Type: Spontaneous
  Country: US (occurrence: None)
  Receive Date: 20250619
  Receipt Date: 20250619
  Transmission Date: 20250716
  Serious: Yes (Other)
  Sender: FDA-CTU
  Company Number: None

PATIENT
  Age: 33 Year
  Sex: Female
  Weight: 63 kg

DRUGS (2)
  1. MONOFERRIC [Suspect]
     Active Substance: FERRIC DERISOMALTOSE
     Indication: Iron deficiency anaemia
  2. IV Monoferric [Concomitant]
     Dates: start: 20250213, end: 20250213

REACTIONS (5)
  - Rash [None]
  - Rash [None]
  - Swelling face [None]
  - Skin tightness [None]
  - Drug hypersensitivity [None]

NARRATIVE: CASE EVENT DATE: 20250214
